FAERS Safety Report 9762790 (Version 2)
Quarter: 2013Q4

REPORT INFORMATION
  Report Type: Spontaneous
  Country: IT (occurrence: IT)
  Receive Date: 20131216
  Receipt Date: 20131216
  Transmission Date: 20140711
  Serious: Yes (Hospitalization, Other)
  Sender: FDA-Public Use
  Company Number: IT-WATSON-2012-08510

PATIENT
  Age: 63 Year
  Sex: Female

DRUGS (1)
  1. LEVOFLOXACIN (UNKNOWN) [Suspect]
     Indication: CYSTITIS HAEMORRHAGIC
     Dosage: UNK
     Route: 065

REACTIONS (2)
  - Status epilepticus [None]
  - Neurotoxicity [None]
